FAERS Safety Report 18567376 (Version 13)
Quarter: 2021Q2

REPORT INFORMATION
  Report Type: Spontaneous
  Country: CA (occurrence: CA)
  Receive Date: 20201201
  Receipt Date: 20210521
  Transmission Date: 20210717
  Serious: Yes (Other)
  Sender: FDA-Public Use
  Company Number: CA-CELLTRION INC.-2019CA019775

PATIENT

DRUGS (6)
  1. INFLECTRA [Suspect]
     Active Substance: INFLIXIMAB-DYYB
     Dosage: 300 MG 0, 2, 6 WEEKS, THEN EVERY 8 WEEKS
     Route: 042
     Dates: start: 20210324, end: 20210506
  2. INFLECTRA [Suspect]
     Active Substance: INFLIXIMAB-DYYB
     Dosage: 300 MG 0, 2, 6 WEEKS, THEN EVERY 8 WEEKS
     Route: 042
     Dates: start: 20210409, end: 20210409
  3. INFLECTRA [Suspect]
     Active Substance: INFLIXIMAB-DYYB
     Dosage: 300 MG 0, 2, 6 WEEKS, THEN EVERY 8 WEEKS
     Route: 042
     Dates: start: 20210506
  4. HYDROCORTISONE. [Concomitant]
     Active Substance: HYDROCORTISONE
     Indication: PREMEDICATION
     Dosage: 100 MG
     Route: 042
  5. PREDNISONE. [Concomitant]
     Active Substance: PREDNISONE
     Dosage: 40 MG, 1X/DAY (QD)
     Dates: start: 201901
  6. INFLECTRA [Suspect]
     Active Substance: INFLIXIMAB-DYYB
     Indication: CROHN^S DISEASE
     Dosage: 225 MG 0, 2, 6 WEEKS, THEN EVERY 8 WEEKS) (Q 0 WEEK (RECEIVED ONLY 1 DOSE))
     Route: 042
     Dates: start: 20190228, end: 20190228

REACTIONS (44)
  - Flatulence [Unknown]
  - Asthenia [Not Recovered/Not Resolved]
  - Rash [Unknown]
  - Oxygen saturation decreased [Unknown]
  - Abdominal infection [Unknown]
  - Eating disorder [Unknown]
  - Insomnia [Unknown]
  - Vision blurred [Not Recovered/Not Resolved]
  - Muscle spasms [Recovered/Resolved]
  - Weight decreased [Unknown]
  - Blood pressure increased [Unknown]
  - Dyspnoea [Recovered/Resolved]
  - Intentional product use issue [Unknown]
  - Cerebral disorder [Unknown]
  - Periorbital swelling [Unknown]
  - Balance disorder [Unknown]
  - Weight increased [Unknown]
  - Abscess [Not Recovered/Not Resolved]
  - Respiratory rate increased [Unknown]
  - Arthropathy [Unknown]
  - Cataract [Unknown]
  - Loss of consciousness [Recovered/Resolved]
  - Off label use [Unknown]
  - Sinusitis [Not Recovered/Not Resolved]
  - Respiratory tract congestion [Not Recovered/Not Resolved]
  - Cough [Not Recovered/Not Resolved]
  - Pain [Not Recovered/Not Resolved]
  - Skin fissures [Unknown]
  - Unresponsive to stimuli [Recovered/Resolved]
  - Back pain [Unknown]
  - Agitation [Unknown]
  - Flushing [Unknown]
  - Chills [Unknown]
  - Frequent bowel movements [Unknown]
  - Depressed mood [Unknown]
  - Infusion site reaction [Recovered/Resolved]
  - Condition aggravated [Not Recovered/Not Resolved]
  - Panic reaction [Unknown]
  - Crying [Unknown]
  - Feeling abnormal [Unknown]
  - Musculoskeletal chest pain [Unknown]
  - Nervousness [Not Recovered/Not Resolved]
  - Axillary pain [Unknown]
  - Skin weeping [Unknown]

NARRATIVE: CASE EVENT DATE: 2019
